FAERS Safety Report 12583877 (Version 1)
Quarter: 2016Q3

REPORT INFORMATION
  Report Type: Spontaneous
  Country: US (occurrence: US)
  Receive Date: 20160722
  Receipt Date: 20160722
  Transmission Date: 20161109
  Serious: Yes (Hospitalization, Other)
  Sender: FDA-Public Use
  Company Number: US-TEVA-677577USA

PATIENT
  Sex: Female

DRUGS (1)
  1. COPAXONE [Suspect]
     Active Substance: GLATIRAMER ACETATE
     Indication: MULTIPLE SCLEROSIS
     Dosage: UNKNOWN FORM STRENGTH
     Route: 058
     Dates: start: 20160704

REACTIONS (5)
  - Clostridium difficile colitis [Unknown]
  - Cognitive disorder [Unknown]
  - Bronchitis [Unknown]
  - Diarrhoea [Unknown]
  - Ear infection [Unknown]

NARRATIVE: CASE EVENT DATE: 2016
